FAERS Safety Report 6819261-4 (Version None)
Quarter: 2010Q3

REPORT INFORMATION
  Report Type: 
  Country: None (occurrence: None)
  Receive Date: 20100707
  Receipt Date: 20100701
  Transmission Date: 20110219
  Serious: Yes (Other)
  Sender: FDA-Public Use
  Company Number: US-ASTRAZENECA-2008UW01196

PATIENT
  Age: 36 Year
  Sex: Male
  Weight: 104.3 kg

DRUGS (20)
  1. SEROQUEL [Suspect]
     Indication: BIPOLAR DISORDER
     Route: 048
     Dates: start: 20000101
  2. SEROQUEL [Suspect]
     Indication: SCHIZOPHRENIA
     Route: 048
     Dates: start: 20000101
  3. SEROQUEL [Suspect]
     Indication: ANXIETY
     Route: 048
     Dates: start: 20000101
  4. SEROQUEL [Suspect]
     Indication: DEPRESSION
     Route: 048
     Dates: start: 20000101
  5. SEROQUEL [Suspect]
     Dosage: 100 MG-400 MG
     Route: 048
     Dates: start: 20030604
  6. SEROQUEL [Suspect]
     Dosage: 100 MG-400 MG
     Route: 048
     Dates: start: 20030604
  7. SEROQUEL [Suspect]
     Dosage: 100 MG-400 MG
     Route: 048
     Dates: start: 20030604
  8. SEROQUEL [Suspect]
     Dosage: 100 MG-400 MG
     Route: 048
     Dates: start: 20030604
  9. PRAVACHOL [Concomitant]
     Route: 048
  10. ACCUPRIL [Concomitant]
     Route: 048
  11. CLARINEX [Concomitant]
     Route: 048
  12. TRAZODONE HYDROCHLORIDE [Concomitant]
     Route: 048
  13. RISPERDAL [Concomitant]
     Indication: ANXIETY
     Route: 048
     Dates: start: 20000101
  14. RISPERDAL [Concomitant]
     Indication: DEPRESSION
     Route: 048
     Dates: start: 20000101
  15. RISPERDAL [Concomitant]
     Indication: BIPOLAR DISORDER
     Route: 048
     Dates: start: 20000101
  16. RISPERDAL [Concomitant]
     Indication: SCHIZOPHRENIA
     Route: 048
     Dates: start: 20000101
  17. LIPITOR [Concomitant]
     Route: 048
  18. ZETIA [Concomitant]
     Route: 048
  19. KLONOPIN [Concomitant]
     Route: 048
  20. LEXAPRO [Concomitant]
     Route: 048

REACTIONS (9)
  - BACK INJURY [None]
  - BLOOD CHOLESTEROL INCREASED [None]
  - BLOOD TRIGLYCERIDES INCREASED [None]
  - CARDIAC DISORDER [None]
  - DIABETES MELLITUS [None]
  - DIABETIC COMPLICATION [None]
  - HYPERLIPIDAEMIA [None]
  - OBESITY [None]
  - TYPE 2 DIABETES MELLITUS [None]
